FAERS Safety Report 11549921 (Version 1)
Quarter: 2015Q3

REPORT INFORMATION
  Report Type: Report from Study
  Country: IL (occurrence: IL)
  Receive Date: 20150924
  Receipt Date: 20150924
  Transmission Date: 20151125
  Serious: Yes (Hospitalization)
  Sender: FDA-Public Use
  Company Number: IL-ABBVIE-15P-082-1467081-00

PATIENT
  Sex: Male

DRUGS (2)
  1. DUODOPA [Suspect]
     Active Substance: CARBIDOPA\LEVODOPA
     Indication: PARKINSON^S DISEASE
     Route: 050
  2. DUODOPA [Suspect]
     Active Substance: CARBIDOPA\LEVODOPA
     Dosage: DOSE DECREASED TO CONSTANT RATE
     Route: 050

REACTIONS (5)
  - Loss of consciousness [Unknown]
  - Diabetes mellitus [Unknown]
  - Hallucination [Unknown]
  - Autonomic neuropathy [Unknown]
  - Orthostatic intolerance [Unknown]
